FAERS Safety Report 6728515-1 (Version None)
Quarter: 2010Q2

REPORT INFORMATION
  Report Type: 
  Country: None (occurrence: None)
  Receive Date: 20100517
  Receipt Date: 20100510
  Transmission Date: 20101027
  Serious: Yes (Congenital Anomaly, Other)
  Sender: FDA-Public Use
  Company Number: GB-PFIZER INC-2009307850

PATIENT
  Age: 1 Day
  Sex: Male
  Weight: 3.37 kg

DRUGS (11)
  1. ZIDOVUDINE [Suspect]
     Indication: HIV INFECTION
     Dosage: 600 MG, 1X/DAY
     Route: 064
     Dates: start: 20040601, end: 20040720
  2. VIRACEPT [Suspect]
     Indication: HIV INFECTION
     Dosage: 2500 MG, 1X/DAY
     Route: 064
     Dates: start: 20040130, end: 20040601
  3. LAMIVUDINE [Suspect]
     Indication: HIV INFECTION
     Dosage: 1200 MG, 1X/DAY
     Route: 064
     Dates: start: 20040130, end: 20040601
  4. KALETRA [Suspect]
     Indication: HIV INFECTION
     Dosage: 600 MG, 1X/DAY
     Route: 064
     Dates: start: 20040601
  5. VIREAD [Suspect]
     Indication: HIV INFECTION
     Dosage: 300 MG, 1X/DAY
     Route: 064
     Dates: start: 20040606, end: 20040910
  6. COMBIVIR [Suspect]
     Indication: HIV INFECTION
     Dosage: 600 MG, 1X/DAY
     Route: 048
     Dates: start: 20040130, end: 20040601
  7. RETROVIR [Suspect]
     Indication: HIV INFECTION
     Dosage: 600 MG, 1X/DAY
     Route: 064
     Dates: start: 20040601, end: 20040720
  8. CRIXIVAN [Suspect]
     Indication: DRUG USE FOR UNKNOWN INDICATION
     Dosage: UNK
     Route: 064
     Dates: start: 20040601, end: 20040720
  9. TRUVADA [Suspect]
     Indication: DRUG USE FOR UNKNOWN INDICATION
     Dosage: UNK
     Route: 064
     Dates: start: 20040601, end: 20040720
  10. TRUVADA [Suspect]
     Indication: HIV INFECTION
  11. FOLIC ACID [Concomitant]
     Indication: DRUG USE FOR UNKNOWN INDICATION
     Dosage: UNK
     Route: 064

REACTIONS (6)
  - ABDOMINAL DISTENSION [None]
  - ABDOMINAL HERNIA [None]
  - CARDIAC MURMUR [None]
  - CONGENITAL ANOMALY [None]
  - CRYPTORCHISM [None]
  - DRUG EXPOSURE DURING PREGNANCY [None]
